FAERS Safety Report 5869398-1 (Version None)
Quarter: 2008Q3

REPORT INFORMATION
  Report Type: 
  Country: None (occurrence: None)
  Receive Date: 20080903
  Receipt Date: 20080828
  Transmission Date: 20090109
  Serious: Yes (Hospitalization)
  Sender: FDA-Public Use
  Company Number: JP-BOEHRINGER INGELHEIM GMBH, GERMANY-2008-BP-13545NB

PATIENT
  Age: 2 Year

DRUGS (4)
  1. PERSANTINE [Suspect]
     Route: 048
     Dates: start: 20080828, end: 20080828
  2. EUGLUCON [Suspect]
     Route: 048
     Dates: start: 20080828, end: 20080828
  3. RENIVACE [Suspect]
     Route: 048
  4. ASPIRIN [Suspect]
     Route: 048

REACTIONS (2)
  - HYPOGLYCAEMIA [None]
  - MEDICATION ERROR [None]
